FAERS Safety Report 4286464-5 (Version None)
Quarter: 2004Q1

REPORT INFORMATION
  Report Type: 
  Country: None (occurrence: None)
  Receive Date: 20040205
  Receipt Date: 20040205
  Transmission Date: 20041129
  Serious: Yes (Other)
  Sender: FDA-Public Use
  Company Number: None

PATIENT
  Age: 34 Year
  Sex: Female
  Weight: 97.8 kg

DRUGS (13)
  1. AMMONIUM LACTATE [Suspect]
     Indication: DRY SKIN
     Dosage: LOWER RT + LEFT LEGS
     Route: 061
     Dates: start: 20031112
  2. ZYVOX [Concomitant]
  3. ENTAPENEM [Concomitant]
  4. FILGRASTIM [Concomitant]
  5. DEXAMETHASONE [Concomitant]
  6. PAXIL [Concomitant]
  7. LASIX [Concomitant]
  8. CLARITHROMYCIN [Concomitant]
  9. AMIKACIN [Concomitant]
  10. PERCOCET [Concomitant]
  11. HUMALOG [Concomitant]
  12. EPOGEN [Concomitant]
  13. DIFLUCAN [Concomitant]

REACTIONS (4)
  - APPLICATION SITE BURNING [None]
  - APPLICATION SITE ERYTHEMA [None]
  - APPLICATION SITE PAIN [None]
  - APPLICATION SITE PRURITUS [None]
